FAERS Safety Report 5876207-3 (Version None)
Quarter: 2008Q3

REPORT INFORMATION
  Report Type: 
  Country: None (occurrence: None)
  Receive Date: 20080908
  Receipt Date: 20080908
  Transmission Date: 20090109
  Serious: Yes (Other)
  Sender: FDA-Public Use
  Company Number: None

PATIENT
  Age: 12 Year
  Sex: Male
  Weight: 47.6277 kg

DRUGS (2)
  1. SINGULAIR [Suspect]
     Indication: ASTHMA
     Dosage: ONE TABLET DAILY AT BEDTIME
     Dates: start: 20010603, end: 20080505
  2. SINGULAIR [Suspect]

REACTIONS (11)
  - ABNORMAL BEHAVIOUR [None]
  - ANGER [None]
  - ANXIETY [None]
  - DEPRESSION [None]
  - FEAR [None]
  - FEAR OF DISEASE [None]
  - MOOD SWINGS [None]
  - OBSESSIVE-COMPULSIVE DISORDER [None]
  - SCREAMING [None]
  - SLEEP DISORDER [None]
  - TINNITUS [None]
